FAERS Safety Report 14368694 (Version 8)
Quarter: 2021Q3

REPORT INFORMATION
  Report Type: Spontaneous
  Country: US (occurrence: US)
  Receive Date: 20180109
  Receipt Date: 20210702
  Transmission Date: 20211014
  Serious: No
  Sender: FDA-Public Use
  Company Number: US-PFIZER INC-2017330503

PATIENT
  Age: 70 Year
  Sex: Female
  Weight: 73 kg

DRUGS (1)
  1. XELJANZ XR [Suspect]
     Active Substance: TOFACITINIB CITRATE
     Indication: RHEUMATOID ARTHRITIS
     Dosage: 11 MG, 1X/DAY
     Route: 048
     Dates: start: 201711

REACTIONS (8)
  - Fatigue [Not Recovered/Not Resolved]
  - Urinary tract infection [Unknown]
  - Hypoacusis [Unknown]
  - Asthenia [Unknown]
  - Pain in extremity [Unknown]
  - Blood glucose increased [Unknown]
  - Fall [Unknown]
  - Pain [Recovering/Resolving]

NARRATIVE: CASE EVENT DATE: 201712
